FAERS Safety Report 5678046-5 (Version None)
Quarter: 2008Q1

REPORT INFORMATION
  Report Type: 
  Country: None (occurrence: None)
  Receive Date: 20080320
  Receipt Date: 20080318
  Transmission Date: 20080703
  Serious: Yes (Hospitalization)
  Sender: FDA-Public Use
  Company Number: 2007SP011090

PATIENT
  Age: 72 Year
  Sex: Male

DRUGS (3)
  1. INTRON A [Suspect]
     Indication: MYELOPROLIFERATIVE DISORDER
     Dosage: 0.5 ML; TIW; IV; 0.5 ML; BIW; IV; 0.5 ML; QW; IV
     Route: 042
     Dates: end: 20070501
  2. INTRON A [Suspect]
     Indication: MYELOPROLIFERATIVE DISORDER
     Dosage: 0.5 ML; TIW; IV; 0.5 ML; BIW; IV; 0.5 ML; QW; IV
     Route: 042
  3. INTRON A [Suspect]
     Indication: MYELOPROLIFERATIVE DISORDER
     Dosage: 0.5 ML; TIW; IV; 0.5 ML; BIW; IV; 0.5 ML; QW; IV
     Route: 042
     Dates: start: 20070510

REACTIONS (14)
  - BACK PAIN [None]
  - CHEST PAIN [None]
  - HAEMATEMESIS [None]
  - INFLUENZA LIKE ILLNESS [None]
  - IRRITABILITY [None]
  - LEUKAEMIA [None]
  - LIVER DISORDER [None]
  - NAUSEA [None]
  - NECK PAIN [None]
  - PAIN IN EXTREMITY [None]
  - SKIN LESION [None]
  - SPLEEN DISORDER [None]
  - TREMOR [None]
  - WEIGHT DECREASED [None]
